FAERS Safety Report 13330035 (Version 2)
Quarter: 2017Q2

REPORT INFORMATION
  Report Type: Spontaneous
  Country: DE (occurrence: DE)
  Receive Date: 20170313
  Receipt Date: 20170530
  Transmission Date: 20170830
  Serious: Yes (Other)
  Sender: FDA-Public Use
  Company Number: DE-ELI_LILLY_AND_COMPANY-DE201703002330

PATIENT
  Age: 92 Year
  Sex: Female

DRUGS (7)
  1. NITRENDIPIN [Concomitant]
     Active Substance: NITRENDIPINE
     Dosage: 20 MG, DAILY
  2. TRULICITY [Suspect]
     Active Substance: DULAGLUTIDE
     Indication: PRODUCT USED FOR UNKNOWN INDICATION
     Dosage: 0.75 MG, UNKNOWN
     Route: 058
     Dates: start: 20161012, end: 20161025
  3. PIRETANID [Concomitant]
     Dosage: 3 MG, DAILY
  4. SPIRONOLACTON [Concomitant]
     Active Substance: SPIRONOLACTONE
     Dosage: 50 MG, DAILY
  5. SPIRIVA [Concomitant]
     Active Substance: TIOTROPIUM BROMIDE MONOHYDRATE
     Dosage: 2.5 MG, DAILY
  6. SYMBICORD [Concomitant]
     Active Substance: BUDESONIDE\FORMOTEROL
     Dosage: UNK, DAILY
  7. ALLOPURINOL. [Concomitant]
     Active Substance: ALLOPURINOL
     Dosage: UNK, DAILY

REACTIONS (5)
  - Fall [Unknown]
  - Limb injury [Unknown]
  - Cardiac failure [Recovered/Resolved]
  - Oedema peripheral [Recovered/Resolved]
  - Hypersensitivity [Recovered/Resolved]

NARRATIVE: CASE EVENT DATE: 20161025
